FAERS Safety Report 7176703 (Version 7)
Quarter: 2020Q3

REPORT INFORMATION
  Report Type: Report from Study
  Country: IN (occurrence: IN)
  Receive Date: 20091113
  Receipt Date: 20101217
  Transmission Date: 20201104
  Serious: Yes (Hospitalization, Other)
  Sender: FDA-Public Use
  Company Number: IN-JNJFOC-20091102271

PATIENT
  Age: 50 Year
  Sex: Male
  Weight: 50 kg

DRUGS (17)
  1. GOLIMUMAB [Suspect]
     Active Substance: GOLIMUMAB
     Route: 058
     Dates: start: 20081222, end: 20090930
  2. GOLIMUMAB [Suspect]
     Active Substance: GOLIMUMAB
     Route: 058
     Dates: start: 20081222, end: 20090930
  3. GOLIMUMAB [Suspect]
     Active Substance: GOLIMUMAB
     Route: 058
     Dates: start: 20081222, end: 20090930
  4. GOLIMUMAB [Suspect]
     Active Substance: GOLIMUMAB
     Route: 058
     Dates: start: 20081222, end: 20090930
  5. GOLIMUMAB [Suspect]
     Active Substance: GOLIMUMAB
     Route: 058
     Dates: start: 20081222, end: 20090930
  6. BALACOL [Concomitant]
     Indication: COLITIS ULCERATIVE
     Route: 048
  7. ZINCOVIT [Concomitant]
     Route: 048
  8. GOLIMUMAB [Suspect]
     Active Substance: GOLIMUMAB
     Route: 058
     Dates: start: 20081222, end: 20090930
  9. FOLIC ACID. [Concomitant]
     Active Substance: FOLIC ACID
     Route: 048
  10. DOLO [Concomitant]
     Route: 048
  11. GOLIMUMAB [Suspect]
     Active Substance: GOLIMUMAB
     Indication: COLITIS ULCERATIVE
     Route: 058
     Dates: start: 20081222, end: 20090930
  12. GOLIMUMAB [Suspect]
     Active Substance: GOLIMUMAB
     Route: 058
     Dates: start: 20081222, end: 20090930
  13. GOLIMUMAB [Suspect]
     Active Substance: GOLIMUMAB
     Route: 058
     Dates: start: 20081222, end: 20090930
  14. BALSALAZIDE DISODIUM. [Concomitant]
     Active Substance: BALSALAZIDE DISODIUM
     Indication: COLITIS ULCERATIVE
     Route: 048
  15. EXELYTE [Concomitant]
     Route: 048
  16. GOLIMUMAB [Suspect]
     Active Substance: GOLIMUMAB
     Route: 058
     Dates: start: 20081222, end: 20090930
  17. GOLIMUMAB [Suspect]
     Active Substance: GOLIMUMAB
     Route: 058
     Dates: start: 20081222, end: 20090930

REACTIONS (5)
  - Haemolytic anaemia [Recovered/Resolved]
  - Colitis ulcerative [Recovered/Resolved]
  - Blood bilirubin increased [None]
  - Seronegative arthritis [Recovered/Resolved]
  - Asthenia [None]

NARRATIVE: CASE EVENT DATE: 20090930
